FAERS Safety Report 24366568 (Version 1)
Quarter: 2024Q3

REPORT INFORMATION
  Report Type: Spontaneous
  Country: AU (occurrence: AU)
  Receive Date: 20240926
  Receipt Date: 20240926
  Transmission Date: 20241017
  Serious: Yes (Other)
  Sender: RANBAXY
  Company Number: AU-SUN PHARMACEUTICAL INDUSTRIES LTD-2024RR-469583

PATIENT
  Age: 34 Year
  Sex: Male

DRUGS (3)
  1. AMPHOTERICIN B [Suspect]
     Active Substance: AMPHOTERICIN B
     Indication: Meningitis cryptococcal
     Dosage: INDUCTION THERAPY
     Route: 065
  2. FLUCONAZOLE [Suspect]
     Active Substance: FLUCONAZOLE
     Indication: Meningitis cryptococcal
     Dosage: UNK
     Route: 065
  3. FLUCYTOSINE [Suspect]
     Active Substance: FLUCYTOSINE
     Indication: Meningitis cryptococcal
     Dosage: INDUCTION THERAPY
     Route: 065

REACTIONS (1)
  - Drug ineffective [Unknown]
